FAERS Safety Report 4331171-3 (Version None)
Quarter: 2004Q2

REPORT INFORMATION
  Report Type: 
  Country: None (occurrence: None)
  Receive Date: 20040405
  Receipt Date: 20040329
  Transmission Date: 20050107
  Serious: Yes (Other)
  Sender: FDA-Public Use
  Company Number: PHEH2004US03597

PATIENT
  Age: 22 Year
  Sex: Female
  Weight: 70 kg

DRUGS (4)
  1. ZELNORM [Suspect]
     Indication: IRRITABLE BOWEL SYNDROME
     Dosage: 6 MG, BID
     Route: 048
     Dates: start: 20031201
  2. ZELNORM [Suspect]
     Dosage: 1/2 TABLET QD
     Dates: end: 20040115
  3. FIBERCON [Concomitant]
  4. ORAL CONTRACEPTIVE NOS [Concomitant]

REACTIONS (5)
  - ABNORMAL BEHAVIOUR [None]
  - HYPOMANIA [None]
  - PARAPHILIA [None]
  - PRESSURE OF SPEECH [None]
  - THINKING ABNORMAL [None]
